FAERS Safety Report 16263994 (Version 1)
Quarter: 2019Q2

REPORT INFORMATION
  Report Type: Spontaneous
  Country: US (occurrence: US)
  Receive Date: 20190327
  Receipt Date: 20190327
  Transmission Date: 20190711
  Serious: No
  Sender: FDA-Public Use
  Company Number: None

PATIENT
  Age: 80 Year
  Sex: Female
  Weight: 74.84 kg

DRUGS (2)
  1. PROLIA [Suspect]
     Active Substance: DENOSUMAB
     Indication: OSTEOPOROSIS
     Dosage: ?          QUANTITY:1 SHOT;OTHER ROUTE:INJECTION?
     Dates: start: 20190213
  2. PREDNISONE. [Concomitant]
     Active Substance: PREDNISONE

REACTIONS (8)
  - Muscle spasms [None]
  - Myalgia [None]
  - Headache [None]
  - Back pain [None]
  - Malaise [None]
  - Peripheral swelling [None]
  - Gastric disorder [None]
  - Dyspnoea [None]

NARRATIVE: CASE EVENT DATE: 20190215
